FAERS Safety Report 18683075 (Version 1)
Quarter: 2020Q4

REPORT INFORMATION
  Report Type: Spontaneous
  Country: US (occurrence: US)
  Receive Date: 20201230
  Receipt Date: 20201230
  Transmission Date: 20210114
  Serious: No
  Sender: FDA-Public Use
  Company Number: US-MISSION PHARMACAL COMPANY-2103640

PATIENT
  Age: 38 Year
  Sex: Female

DRUGS (1)
  1. THIOLA EC [Suspect]
     Active Substance: TIOPRONIN
     Indication: CYSTINURIA
     Route: 048
     Dates: start: 20201108

REACTIONS (4)
  - Product dose omission issue [Unknown]
  - Dysgeusia [Unknown]
  - Fatigue [Unknown]
  - Mouth ulceration [Unknown]
